FAERS Safety Report 17263773 (Version 2)
Quarter: 2020Q2

REPORT INFORMATION
  Report Type: Report from Study
  Country: FR (occurrence: FR)
  Receive Date: 20200113
  Receipt Date: 20200428
  Transmission Date: 20200713
  Serious: Yes (Death, Hospitalization, Other)
  Sender: FDA-Public Use
  Company Number: FR-MYLANLABS-2020M1004396

PATIENT
  Age: 65 Year
  Sex: Male
  Weight: 74 kg

DRUGS (16)
  1. VP-16 [Concomitant]
     Active Substance: ETOPOSIDE
     Dosage: UNK
  2. METHOTREXATE. [Suspect]
     Active Substance: METHOTREXATE
     Indication: PSORIASIS
     Dosage: 15 MG, ONCE WEEKLY
     Route: 048
     Dates: start: 20140312, end: 20150721
  3. ENBREL [Suspect]
     Active Substance: ETANERCEPT
     Dosage: 50 MG, ONCE WEEKLY
     Route: 058
     Dates: start: 201601, end: 20160426
  4. CICLOSPORIN [Suspect]
     Active Substance: CYCLOSPORINE
     Indication: PSORIASIS
     Dosage: UNK
     Route: 048
  5. ENBREL [Suspect]
     Active Substance: ETANERCEPT
     Dosage: 25 MG, ONCE WEEKLY
     Route: 058
     Dates: start: 20160426
  6. SORIATANE [Suspect]
     Active Substance: ACITRETIN
     Dosage: 25 MILLIGRAM, QD (25 MG, 1X/DAY)
     Route: 048
     Dates: start: 20140212, end: 20140312
  7. CLOBETASOL PROPIONATE. [Concomitant]
     Active Substance: CLOBETASOL PROPIONATE
     Dosage: UNK
  8. ENBREL [Suspect]
     Active Substance: ETANERCEPT
     Indication: PSORIASIS
     Dosage: 100 MILLIGRAM, QW (50 MG, 2X/WEEK)
     Route: 058
     Dates: start: 20150721, end: 201601
  9. FLUTICASONE. [Concomitant]
     Active Substance: FLUTICASONE
     Dosage: UNK
  10. CARBOPLATIN. [Concomitant]
     Active Substance: CARBOPLATIN
     Dosage: UNK
     Route: 042
  11. FOLIC ACID. [Concomitant]
     Active Substance: FOLIC ACID
     Indication: PSORIASIS
     Dosage: UNK UNK, WEEKLY
     Route: 048
     Dates: start: 20140312, end: 20150721
  12. SORIATANE [Suspect]
     Active Substance: ACITRETIN
     Dosage: 10 MG, UNK
     Route: 048
     Dates: start: 20140312, end: 20150721
  13. SORIATANE [Suspect]
     Active Substance: ACITRETIN
     Indication: PSORIASIS
     Dosage: 10 MG, UNK
     Route: 048
     Dates: start: 20131008, end: 201312
  14. SORIATANE [Suspect]
     Active Substance: ACITRETIN
     Dosage: 15 MG, UNK
     Route: 048
     Dates: start: 201312, end: 20140212
  15. DUROGESIC [Concomitant]
     Active Substance: FENTANYL
     Dosage: 75 (UNK UNITS), EVERY 72 HOURS
  16. SPECIAFOLDINE [Concomitant]
     Active Substance: FOLIC ACID
     Dosage: 10 MG, ONCE WEEKLY
     Route: 048
     Dates: start: 2013, end: 201506

REACTIONS (5)
  - Metastases to liver [Fatal]
  - Drug ineffective [Recovering/Resolving]
  - General physical health deterioration [Fatal]
  - Basal cell carcinoma [Recovered/Resolved]
  - Neuroendocrine tumour of the lung metastatic [Fatal]

NARRATIVE: CASE EVENT DATE: 20141126
